FAERS Safety Report 9913109 (Version 1)
Quarter: 2014Q1

REPORT INFORMATION
  Report Type: Spontaneous
  Country: US (occurrence: None)
  Receive Date: 20140218
  Receipt Date: 20140218
  Transmission Date: 20141002
  Serious: Yes (Disabling)
  Sender: FDA-Public Use
  Company Number: None

PATIENT
  Age: 61 Year
  Sex: Female
  Weight: 70.31 kg

DRUGS (5)
  1. CLINDAMYCIN [Suspect]
     Indication: DENTAL CARE
     Route: 048
     Dates: start: 20131107, end: 20131114
  2. CLINDAMYCIN [Suspect]
     Indication: PROPHYLAXIS
     Route: 048
     Dates: start: 20131107, end: 20131114
  3. CLINDAMYCIN [Suspect]
     Route: 048
     Dates: start: 20131107, end: 20131114
  4. ATORVASTIN [Concomitant]
  5. METOPROLOL [Concomitant]

REACTIONS (3)
  - Abdominal pain [None]
  - Muscle spasms [None]
  - Burning sensation [None]
